FAERS Safety Report 22151112 (Version 2)
Quarter: 2023Q2

REPORT INFORMATION
  Report Type: Report from Study
  Country: BR (occurrence: BR)
  Receive Date: 20230329
  Receipt Date: 20230410
  Transmission Date: 20230722
  Serious: Yes (Death, Hospitalization)
  Sender: FDA-Public Use
  Company Number: BR-002147023-NVSC2023BR002414

PATIENT
  Age: 68 Year
  Sex: Female

DRUGS (2)
  1. KISQALI [Suspect]
     Active Substance: RIBOCICLIB
     Indication: Product used for unknown indication
     Dosage: UNK
     Route: 065
     Dates: start: 20221230, end: 20230216
  2. KISQALI [Suspect]
     Active Substance: RIBOCICLIB
     Dosage: 3 DOSAGE FORM (3 TABLET)
     Route: 065

REACTIONS (10)
  - Metastasis [Fatal]
  - Liver disorder [Unknown]
  - Condition aggravated [Unknown]
  - Vomiting [Recovered/Resolved]
  - Nausea [Unknown]
  - Decreased appetite [Unknown]
  - Vomiting [Recovered/Resolved]
  - Vomiting [Unknown]
  - Cold sweat [Not Recovered/Not Resolved]
  - Product distribution issue [Unknown]

NARRATIVE: CASE EVENT DATE: 20221231
